FAERS Safety Report 6343576-X (Version None)
Quarter: 2009Q3

REPORT INFORMATION
  Report Type: 
  Country: None (occurrence: None)
  Receive Date: 20090904
  Receipt Date: 20090904
  Transmission Date: 20100115
  Serious: Yes (Other)
  Sender: FDA-Public Use
  Company Number: None

PATIENT
  Age: 60 Year
  Sex: Female
  Weight: 64.4108 kg

DRUGS (1)
  1. EMSAM [Suspect]
     Indication: DEPRESSION
     Dosage: 9MG PER DAY
     Dates: start: 20090813, end: 20090814

REACTIONS (3)
  - ECONOMIC PROBLEM [None]
  - INSOMNIA [None]
  - PAIN IN EXTREMITY [None]
